FAERS Safety Report 15956698 (Version 4)
Quarter: 2019Q1

REPORT INFORMATION
  Report Type: Report from Study
  Country: US (occurrence: US)
  Receive Date: 20190213
  Receipt Date: 20190301
  Transmission Date: 20190417
  Serious: Yes (Other)
  Sender: FDA-Public Use
  Company Number: US-JAZZ-2019-US-001693

PATIENT
  Sex: Female

DRUGS (31)
  1. CEFUROXIME AXETIL. [Concomitant]
     Active Substance: CEFUROXIME AXETIL
  2. HYDROQUINONE. [Concomitant]
     Active Substance: HYDROQUINONE
  3. MOMETASONE FUROATE. [Concomitant]
     Active Substance: MOMETASONE FUROATE
  4. IBUPROFEN. [Concomitant]
     Active Substance: IBUPROFEN
  5. TERBINAFINE. [Concomitant]
     Active Substance: TERBINAFINE
  6. MUPIROCIN. [Concomitant]
     Active Substance: MUPIROCIN
  7. RITALIN [Concomitant]
     Active Substance: METHYLPHENIDATE HYDROCHLORIDE
  8. ACICLOVIR [Concomitant]
     Active Substance: ACYCLOVIR
  9. XYREM [Suspect]
     Active Substance: SODIUM OXYBATE
     Dosage: DOSE ADJUSTMENT
     Route: 048
     Dates: start: 201812, end: 201901
  10. XYREM [Suspect]
     Active Substance: SODIUM OXYBATE
     Dosage: 4.5 G, BID
     Route: 048
     Dates: start: 201901
  11. THYMOL [Concomitant]
     Active Substance: THYMOL
  12. TRIAMCINOLONE [Concomitant]
     Active Substance: TRIAMCINOLONE
  13. RETINOL [Concomitant]
     Active Substance: RETINOL
  14. DENTA 5000 PLUS [Concomitant]
     Active Substance: SODIUM FLUORIDE
  15. ZOLOFT [Concomitant]
     Active Substance: SERTRALINE HYDROCHLORIDE
  16. LIFITEGRAST [Concomitant]
     Active Substance: LIFITEGRAST
  17. KETOCONAZOLE. [Concomitant]
     Active Substance: KETOCONAZOLE
  18. BLISOVI FE [Concomitant]
  19. CENTRUM SILVER [Concomitant]
     Active Substance: MINERALS\VITAMINS
  20. CITRACAL-D [Concomitant]
     Active Substance: CALCIUM CITRATE\CHOLECALCIFEROL
  21. DOXYCYCLINE HYCLATE. [Concomitant]
     Active Substance: DOXYCYCLINE HYCLATE
  22. SALAGEN [Concomitant]
     Active Substance: PILOCARPINE HYDROCHLORIDE
  23. BIOTIN [Concomitant]
     Active Substance: BIOTIN
  24. NITROFURANTOIN. [Concomitant]
     Active Substance: NITROFURANTOIN
  25. XYREM [Suspect]
     Active Substance: SODIUM OXYBATE
     Indication: NARCOLEPSY
     Dosage: 2.25 G, BID
     Route: 048
     Dates: start: 201812, end: 201812
  26. CUTEMOL [Concomitant]
  27. OMEPRAZOLE. [Concomitant]
     Active Substance: OMEPRAZOLE
  28. PLAQUENIL S [Concomitant]
     Active Substance: HYDROXYCHLOROQUINE SULFATE
  29. RESTASIS [Concomitant]
     Active Substance: CYCLOSPORINE
  30. TRETINOIN. [Concomitant]
     Active Substance: TRETINOIN
  31. NUVIGIL [Concomitant]
     Active Substance: ARMODAFINIL

REACTIONS (1)
  - Sinusitis [Not Recovered/Not Resolved]
